FAERS Safety Report 10084712 (Version 3)
Quarter: 2014Q3

REPORT INFORMATION
  Report Type: Spontaneous
  Country: US (occurrence: US)
  Receive Date: 20140417
  Receipt Date: 20140819
  Transmission Date: 20150326
  Serious: Yes (Other)
  Sender: FDA-Public Use
  Company Number: US-PFIZER INC-2014103982

PATIENT
  Age: 55 Year
  Sex: Female
  Weight: 107.9 kg

DRUGS (5)
  1. AMLODIPINE [Concomitant]
     Active Substance: AMLODIPINE BESYLATE
     Indication: HYPERTENSION
     Dosage: 5 MG, UNK
  2. PREMARIN [Suspect]
     Active Substance: ESTROGENS, CONJUGATED
     Indication: OESTROGEN REPLACEMENT THERAPY
     Dosage: 0.625 MG, 1X/DAY
     Route: 048
     Dates: start: 198806
  3. LASIX [Concomitant]
     Active Substance: FUROSEMIDE
     Dosage: UNK
  4. PREMARIN [Suspect]
     Active Substance: ESTROGENS, CONJUGATED
     Dosage: 0.625 MG, 1X/DAY
     Route: 048
     Dates: start: 2013
  5. AVAPRO [Concomitant]
     Active Substance: IRBESARTAN
     Dosage: 300 MG, UNK

REACTIONS (7)
  - Pigmentation disorder [Unknown]
  - Blood cholesterol increased [Not Recovered/Not Resolved]
  - Haemorrhage [Unknown]
  - Thrombosis [Unknown]
  - Skin discolouration [Unknown]
  - Swelling [Unknown]
  - Weight increased [Unknown]

NARRATIVE: CASE EVENT DATE: 2014
